FAERS Safety Report 17745218 (Version 2)
Quarter: 2020Q2

REPORT INFORMATION
  Report Type: Report from Study
  Country: None (occurrence: US)
  Receive Date: 20200504
  Receipt Date: 20200508
  Transmission Date: 20200714
  Serious: Yes (Hospitalization, Other)
  Sender: FDA-Public Use
  Company Number: US-ABBVIE-20K-163-3353388-00

PATIENT
  Age: 76 Year
  Sex: Female
  Weight: 66.74 kg

DRUGS (13)
  1. HUMIRA [Suspect]
     Active Substance: ADALIMUMAB
     Indication: RHEUMATOID ARTHRITIS
     Route: 058
     Dates: start: 20190918
  2. HUMIRA [Suspect]
     Active Substance: ADALIMUMAB
     Route: 058
  3. VITAMINS NOS [Concomitant]
     Active Substance: VITAMINS
     Indication: PRODUCT USED FOR UNKNOWN INDICATION
  4. METHOTREXATE. [Concomitant]
     Active Substance: METHOTREXATE
     Indication: RHEUMATOID ARTHRITIS
  5. PLAQUENIL [Concomitant]
     Active Substance: HYDROXYCHLOROQUINE SULFATE
     Indication: RHEUMATOID ARTHRITIS
  6. FOLIC ACID. [Concomitant]
     Active Substance: FOLIC ACID
     Indication: PRODUCT USED FOR UNKNOWN INDICATION
  7. ADVAIR HFA [Concomitant]
     Active Substance: FLUTICASONE PROPIONATE\SALMETEROL XINAFOATE
     Indication: ASTHMA
  8. PREDNISONE. [Concomitant]
     Active Substance: PREDNISONE
     Indication: ARTHRITIS
  9. HUMIRA [Suspect]
     Active Substance: ADALIMUMAB
     Route: 058
  10. LASIX [Concomitant]
     Active Substance: FUROSEMIDE
     Indication: SWELLING
  11. PREDNISONE. [Concomitant]
     Active Substance: PREDNISONE
     Indication: ASTHMA
  12. ASPIRIN. [Concomitant]
     Active Substance: ASPIRIN
     Indication: CARDIAC DISORDER
  13. DORZOLAMIDE [Concomitant]
     Active Substance: DORZOLAMIDE
     Indication: OCULAR DISCOMFORT

REACTIONS (5)
  - Pulmonary oedema [Recovered/Resolved]
  - Seasonal allergy [Unknown]
  - Oxygen saturation decreased [Recovered/Resolved]
  - Asthma [Recovering/Resolving]
  - Cardiac murmur [Recovered/Resolved]

NARRATIVE: CASE EVENT DATE: 202003
